FAERS Safety Report 18261674 (Version 1)
Quarter: 2020Q3

REPORT INFORMATION
  Report Type: Spontaneous
  Country: GB (occurrence: GB)
  Receive Date: 20200914
  Receipt Date: 20200914
  Transmission Date: 20201103
  Serious: Yes (Other)
  Sender: FDA-Public Use
  Company Number: GB-TEVA-2020-GB-1826199

PATIENT
  Age: 49 Year
  Sex: Female
  Weight: 54 kg

DRUGS (2)
  1. NAPROXEN. [Suspect]
     Active Substance: NAPROXEN
     Dosage: UNIT DOSE : 1000 MILLIGRAM
     Route: 048
     Dates: start: 20200518
  2. LANSOPRAZOLE. [Concomitant]
     Active Substance: LANSOPRAZOLE
     Dosage: UNIT DOSE : 1 DOSAGE FORMS
     Dates: start: 20200518, end: 20200615

REACTIONS (1)
  - Peripheral swelling [Recovered/Resolved]

NARRATIVE: CASE EVENT DATE: 20200812
